FAERS Safety Report 21286812 (Version 1)
Quarter: 2022Q3

REPORT INFORMATION
  Report Type: Report from Study
  Country: ES (occurrence: ES)
  Receive Date: 20220902
  Receipt Date: 20220902
  Transmission Date: 20221027
  Serious: Yes (Hospitalization, Other)
  Sender: FDA-Public Use
  Company Number: ES-JNJFOC-20211036409

PATIENT
  Age: 72 Year
  Sex: Male
  Weight: 94.8 kg

DRUGS (15)
  1. ABIRATERONE [Suspect]
     Active Substance: ABIRATERONE
     Indication: Prostate cancer metastatic
     Dosage: 1000 MILLIGRAM, QD
     Route: 048
     Dates: start: 20210821, end: 20210924
  2. ABIRATERONE [Suspect]
     Active Substance: ABIRATERONE
     Dosage: 500 MILLIGRAM, QD
     Route: 048
     Dates: start: 20211014
  3. PREDNISONE [Suspect]
     Active Substance: PREDNISONE
     Indication: Prostate cancer metastatic
     Dosage: 5 MILLIGRAM, BID (0.5 DAY)
     Route: 048
     Dates: start: 20210821, end: 20210924
  4. CYANOCOBALAMIN [Concomitant]
     Active Substance: CYANOCOBALAMIN
     Indication: Product used for unknown indication
     Dosage: UNK
     Route: 065
  5. FOLIC ACID [Concomitant]
     Active Substance: FOLIC ACID
     Indication: Product used for unknown indication
     Dosage: UNK
     Route: 065
  6. ASPIRIN [Concomitant]
     Active Substance: ASPIRIN
     Indication: Product used for unknown indication
     Dosage: UNK
     Route: 065
  7. LEUPROLIDE ACETATE [Concomitant]
     Active Substance: LEUPROLIDE ACETATE
     Indication: Prostate cancer metastatic
     Dosage: UNK
     Route: 065
     Dates: start: 20181220
  8. ALLOPURINOL [Concomitant]
     Active Substance: ALLOPURINOL
     Indication: Hyperuricaemia
     Dosage: UNK
     Route: 065
  9. OMEPRAZOLE [Concomitant]
     Active Substance: OMEPRAZOLE
     Indication: Prophylaxis
     Dosage: UNK
     Route: 065
     Dates: start: 2015
  10. ERGOCALCIFEROL [Concomitant]
     Active Substance: ERGOCALCIFEROL
     Indication: Product used for unknown indication
     Dosage: UNK
     Route: 065
  11. BISOPROLOL [Concomitant]
     Active Substance: BISOPROLOL
     Indication: Hypertension
     Dosage: UNK
     Route: 065
     Dates: start: 2015
  12. ENALAPRIL [Concomitant]
     Active Substance: ENALAPRIL
     Indication: Hypertension
     Dosage: UNK
     Route: 065
     Dates: start: 2015
  13. SIMVASTATIN [Concomitant]
     Active Substance: SIMVASTATIN
     Indication: Product used for unknown indication
     Dosage: UNK
     Route: 065
  14. TINZAPARIN SODIUM [Concomitant]
     Active Substance: TINZAPARIN SODIUM
     Indication: Pulmonary embolism
     Dosage: UNK
     Route: 065
     Dates: start: 202009
  15. EZETIMIBE [Concomitant]
     Active Substance: EZETIMIBE
     Indication: Hypertension
     Dosage: UNK
     Route: 065

REACTIONS (8)
  - Dysphagia [Recovered/Resolved]
  - Gastroenteritis [Recovering/Resolving]
  - Gastric dilatation [Recovering/Resolving]
  - Faecaloma [Recovering/Resolving]
  - Renal failure [Recovering/Resolving]
  - Respiratory tract infection [Recovering/Resolving]
  - Bronchial aspiration procedure [Recovering/Resolving]
  - Atrial fibrillation [Recovering/Resolving]

NARRATIVE: CASE EVENT DATE: 20210920
